FAERS Safety Report 11325051 (Version 4)
Quarter: 2015Q4

REPORT INFORMATION
  Report Type: Report from Study
  Country: US (occurrence: US)
  Receive Date: 20150730
  Receipt Date: 20151120
  Transmission Date: 20160304
  Serious: No
  Sender: FDA-Public Use
  Company Number: PHEH2015US014587

PATIENT
  Age: 74 Year
  Sex: Female

DRUGS (2)
  1. ERIVEDGE [Concomitant]
     Active Substance: VISMODEGIB
     Indication: PRODUCT USED FOR UNKNOWN INDICATION
     Route: 065
  2. COSENTYX [Suspect]
     Active Substance: SECUKINUMAB
     Indication: PSORIASIS
     Dosage: 300 MG, UNK
     Route: 058
     Dates: start: 20150630

REACTIONS (7)
  - Oropharyngeal pain [Recovered/Resolved]
  - Inappropriate schedule of drug administration [Unknown]
  - Dysphonia [Recovered/Resolved]
  - Vulvovaginal mycotic infection [Recovered/Resolved]
  - Painful defaecation [Recovered/Resolved]
  - Angular cheilitis [Not Recovered/Not Resolved]
  - Constipation [Recovered/Resolved]

NARRATIVE: CASE EVENT DATE: 20150722
